FAERS Safety Report 25651519 (Version 1)
Quarter: 2025Q3

REPORT INFORMATION
  Report Type: Spontaneous
  Country: ZA (occurrence: ZA)
  Receive Date: 20250806
  Receipt Date: 20250806
  Transmission Date: 20251020
  Serious: Yes (Other)
  Sender: NOVARTIS
  Company Number: ZA-002147023-NVSC2025ZA124436

PATIENT
  Age: 59 Year
  Sex: Female

DRUGS (1)
  1. FINGOLIMOD HYDROCHLORIDE [Suspect]
     Active Substance: FINGOLIMOD HYDROCHLORIDE
     Indication: Relapsing-remitting multiple sclerosis
     Dosage: 0.5 MG, QD
     Route: 048
     Dates: start: 202311

REACTIONS (8)
  - Lupus-like syndrome [Unknown]
  - Muscular weakness [Unknown]
  - Palpitations [Unknown]
  - Hypertension [Unknown]
  - Gait disturbance [Unknown]
  - Arthritis [Unknown]
  - Tremor [Unknown]
  - Bradykinesia [Unknown]
